FAERS Safety Report 8960512 (Version 1)
Quarter: 2012Q4

REPORT INFORMATION
  Report Type: Spontaneous
  Country: US (occurrence: None)
  Receive Date: 20121207
  Receipt Date: 20121207
  Transmission Date: 20130627
  Serious: Yes (Hospitalization)
  Sender: FDA-Public Use
  Company Number: None

PATIENT
  Sex: Female
  Weight: 117.94 kg

DRUGS (1)
  1. MIRENA [Suspect]

REACTIONS (4)
  - Dysmenorrhoea [None]
  - Device dislocation [None]
  - Ovarian cyst [None]
  - Stress [None]
